FAERS Safety Report 6483774-8 (Version None)
Quarter: 2009Q4

REPORT INFORMATION
  Report Type: 
  Country: None (occurrence: None)
  Receive Date: 20091209
  Receipt Date: 20091201
  Transmission Date: 20100525
  Serious: Yes (Hospitalization)
  Sender: FDA-Public Use
  Company Number: NL-ASTRAZENECA-2009SE29535

PATIENT
  Age: 693 Month
  Sex: Male
  Weight: 78 kg

DRUGS (4)
  1. SELOKEEN ZOC [Suspect]
     Indication: HEART VALVE REPLACEMENT
     Route: 048
     Dates: start: 20090201
  2. BUMETANIDE PCH [Concomitant]
     Route: 048
     Dates: start: 20090501
  3. NON SPECIFIED INSULIN [Concomitant]
     Route: 058
     Dates: start: 20090101
  4. LANTUS [Concomitant]
     Route: 055
     Dates: start: 20090101

REACTIONS (2)
  - LOSS OF CONSCIOUSNESS [None]
  - SYNCOPE [None]
